FAERS Safety Report 24381877 (Version 1)
Quarter: 2024Q4

REPORT INFORMATION
  Report Type: Spontaneous
  Country: GB (occurrence: GB)
  Receive Date: 20241001
  Receipt Date: 20241001
  Transmission Date: 20250115
  Serious: Yes (Other)
  Sender: ACCORD
  Company Number: None

PATIENT
  Age: 81 Year
  Sex: Female

DRUGS (3)
  1. LEVOTHYROXINE [Suspect]
     Active Substance: LEVOTHYROXINE
     Indication: Product used for unknown indication
  2. FAMOTIDINE [Concomitant]
     Active Substance: FAMOTIDINE
  3. POTASSIUM BICARBONATE\SODIUM ALGINATE [Concomitant]
     Active Substance: POTASSIUM BICARBONATE\SODIUM ALGINATE

REACTIONS (1)
  - Hypoacusis [Not Recovered/Not Resolved]
